FAERS Safety Report 8393968-2 (Version None)
Quarter: 2012Q2

REPORT INFORMATION
  Report Type: 
  Country: None (occurrence: None)
  Receive Date: 20120517
  Receipt Date: 20120501
  Transmission Date: 20120825
  Serious: Yes (Congenital Anomaly)
  Sender: FDA-Public Use
  Company Number: B080602B

PATIENT
  Sex: 0

DRUGS (2)
  1. LAMOTRIGINE [Suspect]
     Indication: EPILEPSY
     Dosage: 50 MG/
  2. CARBAMAZEPINE [Suspect]
     Indication: EPILEPSY
     Dosage: 1000 MG/

REACTIONS (3)
  - OESOPHAGEAL ATRESIA [None]
  - RENAL APLASIA [None]
  - MATERNAL DRUGS AFFECTING FOETUS [None]
